FAERS Safety Report 17430833 (Version 1)
Quarter: 2020Q1

REPORT INFORMATION
  Report Type: Spontaneous
  Country: US (occurrence: US)
  Receive Date: 20200217
  Receipt Date: 20200217
  Transmission Date: 20200409
  Serious: Yes (Other)
  Sender: FDA-Public Use
  Company Number: None

PATIENT
  Age: 53 Year
  Sex: Male
  Weight: 112.5 kg

DRUGS (1)
  1. HUMALOG [Suspect]
     Active Substance: INSULIN LISPRO
     Indication: TYPE 1 DIABETES MELLITUS

REACTIONS (5)
  - Dyspnoea [None]
  - Anaphylactic reaction [None]
  - Urticaria [None]
  - Tongue disorder [None]
  - Skin irritation [None]

NARRATIVE: CASE EVENT DATE: 20190801
